FAERS Safety Report 10372950 (Version 2)
Quarter: 2014Q3

REPORT INFORMATION
  Report Type: Spontaneous
  Country: US (occurrence: US)
  Receive Date: 20140808
  Receipt Date: 20140808
  Transmission Date: 20150326
  Serious: No
  Sender: FDA-Public Use
  Company Number: US-BRISTOL-MYERS SQUIBB COMPANY-19840479

PATIENT
  Age: 95 Year
  Sex: Female

DRUGS (16)
  1. ERGOCALCIFEROL. [Concomitant]
     Active Substance: ERGOCALCIFEROL
     Dosage: 1DF= 1 CAPSULE?50000 IU
  2. HYDROCHLOROTHIAZIDE. [Concomitant]
     Active Substance: HYDROCHLOROTHIAZIDE
     Dosage: TABS
  3. SEROQUEL [Concomitant]
     Active Substance: QUETIAPINE FUMARATE
  4. ASA [Concomitant]
     Active Substance: ASPIRIN
  5. POTASSIUM CHLORIDE. [Suspect]
     Active Substance: POTASSIUM CHLORIDE
  6. CATAPRES [Concomitant]
     Active Substance: CLONIDINE HYDROCHLORIDE
  7. LEXAPRO [Concomitant]
     Active Substance: ESCITALOPRAM OXALATE
  8. SYNTHROID [Concomitant]
     Active Substance: LEVOTHYROXINE SODIUM
  9. SPRYCEL [Suspect]
     Active Substance: DASATINIB
     Indication: CHRONIC MYELOID LEUKAEMIA
     Route: 048
     Dates: start: 20131102, end: 20131125
  10. OSTEO BI-FLEX [Concomitant]
     Active Substance: CHONDROITIN SULFATE A\GLUCOSAMINE
  11. PRAVASTATIN SODIUM. [Concomitant]
     Active Substance: PRAVASTATIN SODIUM
  12. OCUVITE LUTEIN [Concomitant]
     Dosage: 1DF= 1 CAPSULE
  13. LASIX [Concomitant]
     Active Substance: FUROSEMIDE
  14. PERCOCET [Concomitant]
     Active Substance: ACETAMINOPHEN\OXYCODONE HYDROCHLORIDE
     Dosage: 5/325 ONE TAB EVERY 6 HRS
  15. DOXYCYCLINE. [Concomitant]
     Active Substance: DOXYCYCLINE
  16. LISINOPRIL. [Concomitant]
     Active Substance: LISINOPRIL
     Dosage: TABS

REACTIONS (6)
  - Dehydration [Unknown]
  - Blood calcium increased [Unknown]
  - Diet refusal [Unknown]
  - Blood potassium increased [Unknown]
  - Red blood cell count decreased [Unknown]
  - Somnolence [Unknown]

NARRATIVE: CASE EVENT DATE: 20131120
